FAERS Safety Report 7889077-9 (Version None)
Quarter: 2011Q4

REPORT INFORMATION
  Report Type: 
  Country: None (occurrence: None)
  Receive Date: 20111103
  Receipt Date: 20111026
  Transmission Date: 20120403
  Serious: Yes (Hospitalization)
  Sender: FDA-Public Use
  Company Number: US-GILEAD-2011-0045970

PATIENT
  Age: 32 Year
  Sex: Female

DRUGS (3)
  1. LETAIRIS [Suspect]
     Indication: PRODUCT USED FOR UNKNOWN INDICATION
     Dosage: 10 MG, UNK
     Route: 048
     Dates: start: 20090303
  2. FLOLAN [Concomitant]
  3. REVATIO [Concomitant]

REACTIONS (2)
  - PNEUMOTHORAX [None]
  - UNEVALUABLE EVENT [None]
